FAERS Safety Report 7694369 (Version 2)
Quarter: 2013Q2

REPORT INFORMATION
  Report Type: Spontaneous
  Country: US (occurrence: US)
  Receive Date: 20101206
  Receipt Date: 20130513
  Transmission Date: 20140414
  Serious: Yes (Other)
  Sender: FDA-Public Use
  Company Number: US-B.I. PHARMACEUTICALS,INC./RIDGEFIELD-2010-BP-12928BP

PATIENT
  Age: 88 Year
  Sex: Male

DRUGS (6)
  1. PRADAXA [Suspect]
     Indication: ATRIAL FIBRILLATION
     Dosage: 300 MG
     Route: 048
     Dates: start: 20101108, end: 20130506
  2. FINASTERIDE [Concomitant]
     Indication: BENIGN PROSTATIC HYPERPLASIA
  3. HYTRIN [Concomitant]
     Dosage: 4 MG
     Route: 048
  4. LISINOPRIL [Concomitant]
     Dosage: 40 MG
     Route: 048
  5. CRESTOR [Concomitant]
     Dosage: 10 MG
     Route: 048
  6. CENTRUM SILVER [Concomitant]
     Route: 048

REACTIONS (3)
  - Skin cancer [Not Recovered/Not Resolved]
  - Pruritus [Not Recovered/Not Resolved]
  - Joint swelling [Not Recovered/Not Resolved]
